FAERS Safety Report 5332117-1 (Version None)
Quarter: 2007Q2

REPORT INFORMATION
  Report Type: 
  Country: None (occurrence: None)
  Receive Date: 20070523
  Receipt Date: 20070514
  Transmission Date: 20071010
  Serious: Yes (Death, Life-Threatening)
  Sender: FDA-Public Use
  Company Number: AU-JNJFOC-20070301179

PATIENT
  Sex: Male
  Weight: 75 kg

DRUGS (10)
  1. REMICADE [Suspect]
     Indication: PYODERMA GANGRENOSUM
     Route: 042
  2. REMICADE [Suspect]
     Indication: PSORIASIS
     Dosage: FIRST INFLIXIMAB INFUSION
     Route: 042
  3. PREDNISOLONE [Concomitant]
  4. MYCOPHENOLATE MOFETIL [Concomitant]
  5. AZATHIOPRINE [Concomitant]
  6. AZATHIOPRINE [Concomitant]
  7. MINOCYCLINE HCL [Concomitant]
  8. CALTRATE [Concomitant]
  9. OSTELIN [Concomitant]
  10. ALENDRONIC ACID [Concomitant]

REACTIONS (4)
  - CARDIAC FAILURE ACUTE [None]
  - DIVERTICULITIS [None]
  - INTESTINAL PERFORATION [None]
  - SEPSIS [None]
